FAERS Safety Report 10192907 (Version 2)
Quarter: 2014Q3

REPORT INFORMATION
  Report Type: Report from Study
  Country: JP (occurrence: JP)
  Receive Date: 20140523
  Receipt Date: 20140709
  Transmission Date: 20150326
  Serious: Yes (Other)
  Sender: FDA-Public Use
  Company Number: JP-ALLERGAN-1410263US

PATIENT
  Age: 3 Year
  Weight: 11 kg

DRUGS (9)
  1. SELENICA-R [Concomitant]
     Active Substance: SELENIUM
     Indication: MUSCLE SPASMS
     Route: 048
     Dates: start: 20130708
  2. BOTULINUM TOXIN TYPE A - GENERAL (9060X) [Suspect]
     Active Substance: BOTULINUM TOXIN TYPE A
     Indication: MUSCLE SPASMS
     Dosage: 60 UNITS, SINGLE
     Route: 030
     Dates: start: 20120914, end: 20120914
  3. L-CARTIN [Concomitant]
     Active Substance: LEVOCARNITINE HYDROCHLORIDE
     Indication: PRODUCT USED FOR UNKNOWN INDICATION
     Route: 048
     Dates: start: 20130708
  4. DEPAKENE [Concomitant]
     Active Substance: VALPROIC ACID
     Indication: MUSCLE SPASMS
     Route: 048
     Dates: start: 20130624
  5. MYONAL [Concomitant]
     Active Substance: EPERISONE HYDROCHLORIDE
     Indication: MUSCLE SPASMS
     Route: 048
     Dates: start: 20130708
  6. CHINESE MEDICINE [Concomitant]
     Active Substance: UNSPECIFIED INGREDIENT
     Indication: MUSCLE SPASMS
     Route: 048
     Dates: start: 20130704
  7. CHINESE MEDICINE [Concomitant]
     Active Substance: UNSPECIFIED INGREDIENT
     Route: 048
     Dates: start: 20130704
  8. BOTULINUM TOXIN TYPE A - GENERAL (9060X) [Suspect]
     Active Substance: BOTULINUM TOXIN TYPE A
     Dosage: 100 UNITS, SINGLE
     Route: 030
     Dates: start: 20130104, end: 20130104
  9. EXCEGRAN [Concomitant]
     Active Substance: ZONISAMIDE
     Indication: MUSCLE SPASMS
     Route: 048
     Dates: end: 20130626

REACTIONS (5)
  - Off label use [Unknown]
  - Injection site rash [Recovered/Resolved]
  - Epilepsy [Not Recovered/Not Resolved]
  - Injection site rash [Recovered/Resolved]
  - Carnitine deficiency [Not Recovered/Not Resolved]

NARRATIVE: CASE EVENT DATE: 20120915
